FAERS Safety Report 25984716 (Version 1)
Quarter: 2025Q4

REPORT INFORMATION
  Report Type: Spontaneous
  Country: EU (occurrence: EU)
  Receive Date: 20251031
  Receipt Date: 20251031
  Transmission Date: 20260118
  Serious: Yes (Hospitalization)
  Sender: PFIZER
  Company Number: None

PATIENT
  Age: 3 Year
  Sex: Female

DRUGS (2)
  1. KETAMINE HYDROCHLORIDE [Suspect]
     Active Substance: KETAMINE HYDROCHLORIDE
     Dosage: 15 ML, 1X/DAY
     Route: 042
     Dates: start: 20250721, end: 20250721
  2. VANCOMYCIN [Suspect]
     Active Substance: VANCOMYCIN
     Indication: Skin infection
     Dosage: 60 MG, 1X/DAY
     Route: 042
     Dates: start: 20250721, end: 20250721

REACTIONS (1)
  - Vancomycin infusion reaction [Recovered/Resolved]

NARRATIVE: CASE EVENT DATE: 20250721
